FAERS Safety Report 14767930 (Version 1)
Quarter: 2018Q2

REPORT INFORMATION
  Report Type: Spontaneous
  Country: US (occurrence: US)
  Receive Date: 20180410
  Receipt Date: 20180410
  Transmission Date: 20180711
  Serious: Yes (Other)
  Sender: FDA-Public Use
  Company Number: None

PATIENT
  Age: 65 Year
  Sex: Male
  Weight: 95.85 kg

DRUGS (1)
  1. METHADONE [Suspect]
     Active Substance: METHADONE HYDROCHLORIDE
     Indication: OSTEOARTHRITIS
     Dosage: ?          OTHER FREQUENCY:FIVE TIMES A DAY;?
     Route: 048

REACTIONS (1)
  - Drug ineffective [None]
